FAERS Safety Report 8866092 (Version 4)
Quarter: 2012Q4

REPORT INFORMATION
  Report Type: Report from Study
  Country: BE (occurrence: BE)
  Receive Date: 20121025
  Receipt Date: 20121109
  Transmission Date: 20130627
  Serious: Yes (Hospitalization)
  Sender: FDA-Public Use
  Company Number: BE-ROCHE-1146256

PATIENT
  Age: 62 Year
  Sex: Female
  Weight: 52 kg

DRUGS (12)
  1. PERTUZUMAB [Suspect]
     Indication: BREAST CANCER
     Dosage: date of last dose prior to SAE- 11/Oct/2012
     Route: 042
     Dates: start: 20121011
  2. CAPECITABINE [Suspect]
     Indication: BREAST CANCER
     Dosage: date of last dose prior to SAE- 13/Oct/2012
     Route: 048
     Dates: start: 20121012, end: 20121013
  3. CAPECITABINE [Suspect]
     Route: 048
     Dates: start: 20121018, end: 20121026
  4. TRASTUZUMAB [Suspect]
     Indication: BREAST CANCER
     Dosage: date of last dose prior to SAE- 12/Oct/2012
     Route: 042
     Dates: start: 20121012
  5. IMODIUM [Concomitant]
     Route: 065
     Dates: start: 20121001
  6. OXYCONTIN [Concomitant]
     Route: 065
     Dates: start: 20120503
  7. TRAZOLAN [Concomitant]
     Route: 065
     Dates: start: 201107
  8. SIPRALEXA [Concomitant]
     Route: 065
     Dates: start: 201107
  9. DEPAKINE [Concomitant]
     Route: 065
     Dates: start: 200010
  10. LORMETAZEPAM [Concomitant]
     Route: 065
     Dates: start: 20120830
  11. DAFLON (BELGIUM) [Concomitant]
     Route: 065
     Dates: start: 20120920
  12. STEOVIT D3 [Concomitant]
     Route: 065
     Dates: start: 20060901

REACTIONS (1)
  - Fatigue [Not Recovered/Not Resolved]
